FAERS Safety Report 7600481-6 (Version None)
Quarter: 2011Q2

REPORT INFORMATION
  Report Type: 
  Country: None (occurrence: None)
  Receive Date: 20110629
  Receipt Date: 20110615
  Transmission Date: 20111010
  Serious: Yes (Hospitalization, Other)
  Sender: FDA-Public Use
  Company Number: 2011MA007220

PATIENT
  Age: 61 Year
  Sex: Male

DRUGS (1)
  1. PROPYLTHIOURACIL [Suspect]

REACTIONS (5)
  - HEPATOTOXICITY [None]
  - JAUNDICE [None]
  - ASCITES [None]
  - ABDOMINAL PAIN [None]
  - INTERNATIONAL NORMALISED RATIO INCREASED [None]
